FAERS Safety Report 26107143 (Version 2)
Quarter: 2025Q4

REPORT INFORMATION
  Report Type: Spontaneous
  Country: JP (occurrence: JP)
  Receive Date: 20251201
  Receipt Date: 20251212
  Transmission Date: 20260117
  Serious: Yes (Hospitalization)
  Sender: MYLAN
  Company Number: JP-MYE-2025M1099317AA

PATIENT
  Age: 7 Decade
  Sex: Female

DRUGS (4)
  1. PITAVASTATIN CALCIUM [Interacting]
     Active Substance: PITAVASTATIN CALCIUM
     Indication: Hyperlipidaemia
  2. PAZOPANIB [Interacting]
     Active Substance: PAZOPANIB
     Indication: Metastatic renal cell carcinoma
  3. CANDESARTAN [Concomitant]
     Active Substance: CANDESARTAN
     Indication: Hypertension
  4. LEVOTHYROXINE SODIUM [Concomitant]
     Active Substance: LEVOTHYROXINE SODIUM
     Indication: Product used for unknown indication

REACTIONS (6)
  - Myositis [Recovering/Resolving]
  - Drug interaction [Recovering/Resolving]
  - Disseminated intravascular coagulation [Unknown]
  - Drug eruption [Unknown]
  - Infection [Unknown]
  - Hepatic function abnormal [Unknown]
